FAERS Safety Report 16757578 (Version 1)
Quarter: 2019Q3

REPORT INFORMATION
  Report Type: Spontaneous
  Country: US (occurrence: US)
  Receive Date: 20190830
  Receipt Date: 20190830
  Transmission Date: 20191005
  Serious: No
  Sender: FDA-Public Use
  Company Number: US-AMGEN-USASP2019135706

PATIENT
  Age: 70 Year
  Sex: Female

DRUGS (1)
  1. PROLIA [Suspect]
     Active Substance: DENOSUMAB
     Indication: OSTEOPOROSIS POSTMENOPAUSAL
     Dosage: 60 MILLIGRAM, Q6MO
     Route: 065
     Dates: start: 20190722

REACTIONS (10)
  - Arthralgia [Unknown]
  - Abdominal pain [Unknown]
  - Abdominal distension [Unknown]
  - Dizziness [Unknown]
  - Weight decreased [Unknown]
  - Back pain [Unknown]
  - Constipation [Unknown]
  - Injection site pain [Unknown]
  - Feeding disorder [Unknown]
  - Neck pain [Unknown]

NARRATIVE: CASE EVENT DATE: 2019
